FAERS Safety Report 13467379 (Version 1)
Quarter: 2017Q2

REPORT INFORMATION
  Report Type: Spontaneous
  Country: US (occurrence: US)
  Receive Date: 20170421
  Receipt Date: 20170421
  Transmission Date: 20170830
  Serious: No
  Sender: FDA-Public Use
  Company Number: None

PATIENT
  Age: 54 Year
  Sex: Female
  Weight: 85.5 kg

DRUGS (5)
  1. GABAPENTIN 300MG [Suspect]
     Active Substance: GABAPENTIN
     Indication: ARTHRALGIA
     Dosage: ?          QUANTITY:1 CAPSULE(S);?
     Route: 048
     Dates: start: 20170418, end: 20170421
  2. TRILEPTAL [Concomitant]
     Active Substance: OXCARBAZEPINE
  3. MELATONIN [Concomitant]
     Active Substance: MELATONIN
  4. NYSTATIN. [Concomitant]
     Active Substance: NYSTATIN
  5. PROBIOTIC [Concomitant]
     Active Substance: PROBIOTICS NOS

REACTIONS (2)
  - Headache [None]
  - Terminal insomnia [None]

NARRATIVE: CASE EVENT DATE: 20170421
